FAERS Safety Report 13318612 (Version 2)
Quarter: 2017Q2

REPORT INFORMATION
  Report Type: Spontaneous
  Country: FR (occurrence: FR)
  Receive Date: 20170310
  Receipt Date: 20170404
  Transmission Date: 20170830
  Serious: Yes (Other)
  Sender: FDA-Public Use
  Company Number: FR-ENDO PHARMACEUTICALS INC-2017-001228

PATIENT
  Age: 45 Year
  Sex: Male

DRUGS (4)
  1. FROVA [Suspect]
     Active Substance: FROVATRIPTAN SUCCINATE
     Indication: MIGRAINE
     Dosage: 2.5 MG, DAILY
     Route: 048
     Dates: start: 2014
  2. PARACETAMOL [Concomitant]
     Active Substance: ACETAMINOPHEN
     Indication: PRODUCT USED FOR UNKNOWN INDICATION
     Dosage: UNK, UNKNOWN
     Route: 065
  3. RELPAX [Suspect]
     Active Substance: ELETRIPTAN HYDROBROMIDE
     Dosage: UNK UNK, UNKNOWN
     Route: 048
     Dates: start: 2017
  4. RELPAX [Suspect]
     Active Substance: ELETRIPTAN HYDROBROMIDE
     Indication: MIGRAINE
     Dosage: UNK UNK, UNKNOWN
     Route: 048
     Dates: start: 2009, end: 2014

REACTIONS (3)
  - Drug use disorder [Not Recovered/Not Resolved]
  - Drug use disorder [Recovering/Resolving]
  - Drug withdrawal headache [Not Recovered/Not Resolved]

NARRATIVE: CASE EVENT DATE: 2014
